FAERS Safety Report 9484599 (Version 1)
Quarter: 2013Q3

REPORT INFORMATION
  Report Type: Report from Study
  Country: US (occurrence: US)
  Receive Date: 20130828
  Receipt Date: 20130828
  Transmission Date: 20140515
  Serious: Yes (Other)
  Sender: FDA-Public Use
  Company Number: US-ROCHE-1267464

PATIENT
  Sex: Female

DRUGS (8)
  1. LUCENTIS [Suspect]
     Indication: DIABETIC EYE DISEASE
     Dosage: MOST RECENT DOSE OF RANIBIZUMAB: 19/AUG/2013.
     Route: 065
  2. LUCENTIS [Suspect]
     Indication: DIABETIC RETINOPATHY
  3. LUCENTIS [Suspect]
     Indication: DIABETIC RETINAL OEDEMA
  4. NEURONTIN (UNITED STATES) [Concomitant]
     Route: 065
  5. LISINOPRIL [Concomitant]
     Route: 065
  6. LEVEMIR [Concomitant]
  7. NOVOLOG [Concomitant]
     Dosage: FLEX PEN.
     Route: 065
  8. LIPITOR [Concomitant]
     Route: 065

REACTIONS (1)
  - Strabismus [Unknown]
